FAERS Safety Report 9206597 (Version 2)
Quarter: 2013Q4

REPORT INFORMATION
  Report Type: Spontaneous
  Country: US (occurrence: US)
  Receive Date: 20130403
  Receipt Date: 20131029
  Transmission Date: 20140711
  Serious: Yes (Hospitalization, Disabling)
  Sender: FDA-Public Use
  Company Number: US-BAYER-2013-039246

PATIENT
  Sex: Female

DRUGS (5)
  1. YAZ [Suspect]
     Dosage: UNK
     Dates: start: 200701, end: 201009
  2. IBUPROFEN [Concomitant]
     Dosage: 2 - 3 TIMES PER WEEK
     Dates: start: 20110822
  3. EXCEDRIN [CAFFEINE,PARACETAMOL] [Concomitant]
     Dosage: 2-3 TIMES PER WEEK
     Dates: start: 20110822
  4. ZOFRAN [Concomitant]
     Dosage: UNK
     Dates: start: 20110901
  5. HYDROCODONE [Concomitant]
     Dosage: UNK
     Dates: start: 20110901

REACTIONS (8)
  - Cholecystitis chronic [None]
  - Gallbladder disorder [None]
  - Pain [None]
  - Injury [None]
  - Anxiety [None]
  - Anhedonia [None]
  - Deformity [None]
  - Emotional distress [None]
